FAERS Safety Report 24095854 (Version 1)
Quarter: 2024Q3

REPORT INFORMATION
  Report Type: Spontaneous
  Country: US (occurrence: None)
  Receive Date: 20240715
  Receipt Date: 20240715
  Transmission Date: 20241017
  Serious: Yes (Hospitalization)
  Sender: Public
  Company Number: None

PATIENT
  Age: 39 Year
  Sex: Female

DRUGS (1)
  1. OXBRYTA [Suspect]
     Active Substance: VOXELOTOR
     Dosage: FREQUENCY : DAILY;?
     Route: 048
     Dates: start: 202002

REACTIONS (1)
  - Pain [None]

NARRATIVE: CASE EVENT DATE: 20240626
